FAERS Safety Report 15355192 (Version 7)
Quarter: 2019Q1

REPORT INFORMATION
  Report Type: Spontaneous
  Country: US (occurrence: US)
  Receive Date: 20180906
  Receipt Date: 20190123
  Transmission Date: 20190417
  Serious: No
  Sender: FDA-Public Use
  Company Number: US-PFIZER INC-2018360605

PATIENT
  Age: 70 Year
  Sex: Female
  Weight: 83.91 kg

DRUGS (2)
  1. LYRICA [Suspect]
     Active Substance: PREGABALIN
     Indication: NEUROPATHY PERIPHERAL
     Dosage: UNK
  2. LYRICA [Suspect]
     Active Substance: PREGABALIN
     Dosage: 150 MG, 2X/DAY (1 IN THE MORNING AND 1 IN THE EVENING)
     Route: 048
     Dates: start: 20180907

REACTIONS (6)
  - Vomiting [Unknown]
  - Limb discomfort [Unknown]
  - Abdominal discomfort [Unknown]
  - Burning sensation [Not Recovered/Not Resolved]
  - Pain in extremity [Unknown]
  - Malaise [Unknown]

NARRATIVE: CASE EVENT DATE: 20180901
